FAERS Safety Report 18106875 (Version 2)
Quarter: 2020Q3

REPORT INFORMATION
  Report Type: Spontaneous
  Country: US (occurrence: US)
  Receive Date: 20200803
  Receipt Date: 20200804
  Transmission Date: 20201103
  Serious: No
  Sender: FDA-Public Use
  Company Number: US-PFIZER INC-2020223563

PATIENT
  Age: 73 Year
  Sex: Male

DRUGS (3)
  1. NIVESTYM [Suspect]
     Active Substance: FILGRASTIM-AAFI
     Dosage: 480 MG, DAILY [480 MG QD (EVERY DAY) ON 6?8]
  2. NIVESTYM [Suspect]
     Active Substance: FILGRASTIM-AAFI
     Dosage: UNK (480 MCG/0.8 ML)
  3. NIVESTYM [Suspect]
     Active Substance: FILGRASTIM-AAFI
     Dosage: 300 MG

REACTIONS (2)
  - Product prescribing error [Unknown]
  - Full blood count decreased [Unknown]
